FAERS Safety Report 6254811-0 (Version None)
Quarter: 2009Q3

REPORT INFORMATION
  Report Type: 
  Country: None (occurrence: None)
  Receive Date: 20090702
  Receipt Date: 20090625
  Transmission Date: 20100115
  Serious: Yes (Other)
  Sender: FDA-Public Use
  Company Number: DE-PFIZER INC-2009232496

PATIENT

DRUGS (2)
  1. SORTIS [Suspect]
     Indication: BLOOD CHOLESTEROL INCREASED
     Dosage: 80 MG, UNK
     Dates: start: 20080201
  2. SORTIS [Suspect]
     Dosage: 40 MG, UNK

REACTIONS (2)
  - RHINORRHOEA [None]
  - SINUS DISORDER [None]
